FAERS Safety Report 9215434 (Version 9)
Quarter: 2015Q1

REPORT INFORMATION
  Report Type: Spontaneous
  Country: US (occurrence: US)
  Receive Date: 20130405
  Receipt Date: 20150302
  Transmission Date: 20150721
  Serious: Yes (Hospitalization, Disabling)
  Sender: FDA-Public Use
  Company Number: US-LUNDBECK-DKLU1089858

PATIENT
  Sex: Male
  Weight: 34 kg

DRUGS (6)
  1. ZONISAMIDE. [Concomitant]
     Active Substance: ZONISAMIDE
     Indication: SEIZURE
     Dates: start: 20121114
  2. ONFI [Suspect]
     Active Substance: CLOBAZAM
     Indication: SEIZURE
     Route: 048
     Dates: start: 20130304
  3. ONFI [Suspect]
     Active Substance: CLOBAZAM
     Route: 048
     Dates: start: 20130311, end: 20130316
  4. ONFI [Suspect]
     Active Substance: CLOBAZAM
     Route: 065
     Dates: start: 20130225
  5. ONFI [Suspect]
     Active Substance: CLOBAZAM
     Indication: PARTIAL SEIZURES
     Route: 048
     Dates: start: 20130225
  6. ONFI [Suspect]
     Active Substance: CLOBAZAM
     Route: 048
     Dates: start: 20130311, end: 20130316

REACTIONS (10)
  - Physical disability [Not Recovered/Not Resolved]
  - Stevens-Johnson syndrome [Recovered/Resolved with Sequelae]
  - Seizure [Recovered/Resolved]
  - Emotional distress [Not Recovered/Not Resolved]
  - Somnolence [Unknown]
  - Phlebitis [Recovering/Resolving]
  - Cellulitis [Recovered/Resolved]
  - Atelectasis [Recovered/Resolved]
  - Respiratory distress [Recovered/Resolved]
  - Toxic epidermal necrolysis [Recovered/Resolved with Sequelae]
